FAERS Safety Report 4383039-4 (Version None)
Quarter: 2004Q2

REPORT INFORMATION
  Report Type: 
  Country: None (occurrence: None)
  Receive Date: 20040614
  Receipt Date: 20030814
  Transmission Date: 20050107
  Serious: Yes (Hospitalization, Other)
  Sender: FDA-Public Use
  Company Number: M2004.6762

PATIENT
  Age: 39 Year
  Sex: Male

DRUGS (1)
  1. ATENOLOL [Suspect]
     Dosage: APPROX. 1500-2000MG, ORAL (SUICIDE ATTEMPT)
     Route: 048

REACTIONS (4)
  - BRADYCARDIA [None]
  - HYPOTENSION [None]
  - INTENTIONAL OVERDOSE [None]
  - RESPIRATORY DEPRESSION [None]
